FAERS Safety Report 8242448-3 (Version None)
Quarter: 2012Q1

REPORT INFORMATION
  Report Type: 
  Country: None (occurrence: None)
  Receive Date: 20120329
  Receipt Date: 20120320
  Transmission Date: 20120608
  Serious: Yes (Other)
  Sender: FDA-Public Use
  Company Number: CA-JNJFOC-20120310077

PATIENT
  Sex: Male
  Weight: 90.5 kg

DRUGS (4)
  1. PREDNISONE TAB [Concomitant]
     Route: 065
  2. IMURAN [Concomitant]
     Dosage: 3 TABLETS
     Route: 048
  3. MESALAMINE [Concomitant]
     Route: 065
  4. REMICADE [Suspect]
     Indication: CROHN'S DISEASE
     Route: 042
     Dates: start: 20081001

REACTIONS (1)
  - BONE OPERATION [None]
